FAERS Safety Report 12770367 (Version 1)
Quarter: 2016Q3

REPORT INFORMATION
  Report Type: Report from Study
  Country: CA (occurrence: CA)
  Receive Date: 20160922
  Receipt Date: 20160922
  Transmission Date: 20161109
  Serious: Yes (Death, Other)
  Sender: FDA-Public Use
  Company Number: CA-ROCHE-ITM201502IM009405

PATIENT
  Age: 84 Year
  Sex: Male

DRUGS (8)
  1. CRESTOR [Concomitant]
     Active Substance: ROSUVASTATIN CALCIUM
  2. LYRICA [Concomitant]
     Active Substance: PREGABALIN
  3. HYDROCHLOROTHIAZIDE. [Concomitant]
     Active Substance: HYDROCHLOROTHIAZIDE
  4. VANCOMYCIN [Concomitant]
     Active Substance: VANCOMYCIN
  5. ESBRIET [Suspect]
     Active Substance: PIRFENIDONE
     Indication: IDIOPATHIC PULMONARY FIBROSIS
     Dosage: 1602 MG
     Route: 048
     Dates: start: 20150124
  6. OXYGEN. [Concomitant]
     Active Substance: OXYGEN
  7. MORPHINE [Concomitant]
     Active Substance: MORPHINE
  8. PARIET [Concomitant]
     Active Substance: RABEPRAZOLE SODIUM

REACTIONS (8)
  - Hepatic enzyme increased [Unknown]
  - Death [Fatal]
  - Skin discolouration [Recovered/Resolved]
  - Joint swelling [Recovered/Resolved]
  - Skin exfoliation [Not Recovered/Not Resolved]
  - Drug intolerance [Unknown]
  - Dry skin [Not Recovered/Not Resolved]
  - Pruritus [Recovered/Resolved]

NARRATIVE: CASE EVENT DATE: 20150406
